FAERS Safety Report 9537347 (Version 9)
Quarter: 2014Q3

REPORT INFORMATION
  Report Type: Spontaneous
  Country: CA (occurrence: CA)
  Receive Date: 20130919
  Receipt Date: 20140711
  Transmission Date: 20150326
  Serious: Yes (Other)
  Sender: FDA-Public Use
  Company Number: CA-GLAXOSMITHKLINE-A1004982A

PATIENT
  Age: 55 Year
  Sex: Female
  Weight: 61 kg

DRUGS (13)
  1. MTX [Concomitant]
     Active Substance: METHOTREXATE SODIUM
  2. TYLENOL [Concomitant]
     Active Substance: ACETAMINOPHEN
     Indication: PREMEDICATION
     Route: 048
  3. PREDNISONE. [Concomitant]
     Active Substance: PREDNISONE
     Dosage: 3MG PER DAY
  4. NAPROXEN. [Concomitant]
     Active Substance: NAPROXEN
  5. ACTONEL [Concomitant]
     Active Substance: RISEDRONATE SODIUM
  6. ESTROGEN + PROGESTERONE [Concomitant]
  7. TRAMADOL [Concomitant]
     Active Substance: TRAMADOL
  8. BENLYSTA [Suspect]
     Active Substance: BELIMUMAB
     Indication: SYSTEMIC LUPUS ERYTHEMATOSUS
     Dosage: 610MG SEE DOSAGE TEXT
     Route: 042
     Dates: start: 20121127
  9. VITAMIN D [Concomitant]
     Active Substance: CHOLECALCIFEROL
  10. BENADRYL [Concomitant]
     Active Substance: DIPHENHYDRAMINE HYDROCHLORIDE
     Indication: PREMEDICATION
     Route: 048
  11. WELLBUTRIN [Concomitant]
     Active Substance: BUPROPION HYDROCHLORIDE
  12. CALCIUM [Concomitant]
     Active Substance: CALCIUM
  13. ADVIL [Concomitant]
     Active Substance: IBUPROFEN

REACTIONS (13)
  - Paronychia [Recovering/Resolving]
  - Postmenopausal haemorrhage [Recovered/Resolved]
  - Ill-defined disorder [Not Recovered/Not Resolved]
  - Nail operation [Recovering/Resolving]
  - Fall [Unknown]
  - Spinal fracture [Recovering/Resolving]
  - Oropharyngeal pain [Recovered/Resolved]
  - Nasopharyngitis [Recovered/Resolved]
  - Pain in jaw [Recovered/Resolved]
  - Rash [Unknown]
  - Skin discolouration [Unknown]
  - Cough [Recovered/Resolved]
  - Bone density decreased [Not Recovered/Not Resolved]

NARRATIVE: CASE EVENT DATE: 20121211
